FAERS Safety Report 13733621 (Version 2)
Quarter: 2017Q3

REPORT INFORMATION
  Report Type: Spontaneous
  Country: US (occurrence: US)
  Receive Date: 20170707
  Receipt Date: 20170816
  Transmission Date: 20171127
  Serious: No
  Sender: FDA-Public Use
  Company Number: US-009507513-1706USA008891

PATIENT
  Sex: Female
  Weight: 51.7 kg

DRUGS (1)
  1. DULERA [Suspect]
     Active Substance: FORMOTEROL FUMARATE DIHYDRATE\MOMETASONE FUROATE
     Indication: ASTHMA
     Dosage: 2 PUFFS / TWICE A DAY
     Route: 055

REACTIONS (4)
  - Drug dose omission [Unknown]
  - Underdose [Unknown]
  - No adverse event [Unknown]
  - Product container issue [Unknown]
